FAERS Safety Report 6581358-4 (Version None)
Quarter: 2010Q1

REPORT INFORMATION
  Report Type: 
  Country: None (occurrence: None)
  Receive Date: 20100215
  Receipt Date: 20100209
  Transmission Date: 20100710
  Serious: Yes (Other)
  Sender: FDA-Public Use
  Company Number: B0633374A

PATIENT
  Age: 33 Year
  Sex: Female

DRUGS (1)
  1. ALLI [Suspect]
     Dosage: 180MG PER DAY
     Route: 048
     Dates: start: 20100202, end: 20100207

REACTIONS (2)
  - DIARRHOEA [None]
  - HAEMATOCHEZIA [None]
